FAERS Safety Report 22283336 (Version 11)
Quarter: 2024Q3

REPORT INFORMATION
  Report Type: Spontaneous
  Country: CA (occurrence: CA)
  Receive Date: 20230504
  Receipt Date: 20240715
  Transmission Date: 20241016
  Serious: Yes (Hospitalization)
  Sender: PFIZER
  Company Number: CA-PFIZER INC-202300130850

PATIENT
  Age: 61 Year
  Sex: Male
  Weight: 78.6 kg

DRUGS (16)
  1. ABRILADA [Suspect]
     Active Substance: ADALIMUMAB-AFZB
     Indication: Ankylosing spondylitis
     Dosage: 40 MG, EVERY 2 WEEK (EVERY OTHER WEEK)
     Route: 058
     Dates: start: 20230321
  2. ABRILADA [Suspect]
     Active Substance: ADALIMUMAB-AFZB
     Dosage: 40 MG EVERY 2 WEEK
     Route: 058
     Dates: start: 20230404
  3. ABRILADA [Suspect]
     Active Substance: ADALIMUMAB-AFZB
     Dosage: 40 MG EVERY 2 WEEK
     Route: 058
     Dates: start: 20230502
  4. ABRILADA [Suspect]
     Active Substance: ADALIMUMAB-AFZB
     Dosage: 40 MG EVERY 2 WEEK
     Route: 058
     Dates: start: 20230509, end: 20230509
  5. ABRILADA [Suspect]
     Active Substance: ADALIMUMAB-AFZB
     Dosage: 40 MG EVERY 2 WEEK
     Route: 058
     Dates: start: 2024
  6. ALLOPURINOL [Concomitant]
     Active Substance: ALLOPURINOL
     Indication: Gout
     Dosage: UNK
     Route: 048
     Dates: start: 20201109
  7. INDOMETHACIN [Concomitant]
     Active Substance: INDOMETHACIN
     Indication: Gout
     Dosage: UNK, AS NEEDED
     Route: 048
     Dates: start: 202007
  8. INDOMETHACIN [Concomitant]
     Active Substance: INDOMETHACIN
     Dosage: UNK, AS NEEDED
     Route: 048
     Dates: start: 202011
  9. KENALOG [Concomitant]
     Active Substance: TRIAMCINOLONE ACETONIDE
     Indication: Gout
     Dosage: 80 MG
  10. METHOTREXATE SODIUM [Concomitant]
     Active Substance: METHOTREXATE SODIUM
     Dosage: 1 DF
  11. NAPROXEN [Concomitant]
     Active Substance: NAPROXEN
     Indication: Ankylosing spondylitis
     Dosage: 1 DF, AS NEEDED
     Route: 048
     Dates: start: 201408
  12. NAPROXEN [Concomitant]
     Active Substance: NAPROXEN
     Dosage: 1 DF, AS NEEDED
     Dates: start: 202108
  13. NAPROXEN [Concomitant]
     Active Substance: NAPROXEN
     Dosage: 1 DF
  14. OXYCODONE [Concomitant]
     Active Substance: OXYCODONE
     Indication: Pain
     Dosage: UNK, AS NEEDED
     Route: 048
  15. RABEPRAZOLE SODIUM [Concomitant]
     Active Substance: RABEPRAZOLE SODIUM
     Indication: Gastrooesophageal reflux disease
     Dosage: UNK
     Route: 048
  16. SULFASALAZINE [Concomitant]
     Active Substance: SULFASALAZINE
     Dosage: 1 DF

REACTIONS (23)
  - Dyspnoea [Recovering/Resolving]
  - Foot deformity [Unknown]
  - Chest pain [Unknown]
  - Bone pain [Unknown]
  - Drug ineffective [Unknown]
  - Iritis [Not Recovered/Not Resolved]
  - Rash macular [Not Recovered/Not Resolved]
  - Contusion [Not Recovered/Not Resolved]
  - Rash pruritic [Not Recovered/Not Resolved]
  - Mass [Not Recovered/Not Resolved]
  - Pain in extremity [Not Recovered/Not Resolved]
  - Pain [Unknown]
  - Cough [Not Recovered/Not Resolved]
  - Sleep disorder [Unknown]
  - Anxiety [Not Recovered/Not Resolved]
  - Painful respiration [Not Recovered/Not Resolved]
  - Sinus disorder [Not Recovered/Not Resolved]
  - Illness [Not Recovered/Not Resolved]
  - Vomiting [Unknown]
  - Malaise [Unknown]
  - Dizziness [Unknown]
  - Upper respiratory tract infection bacterial [Recovering/Resolving]
  - Musculoskeletal stiffness [Not Recovered/Not Resolved]

NARRATIVE: CASE EVENT DATE: 20230101
